FAERS Safety Report 7476286-6 (Version None)
Quarter: 2011Q2

REPORT INFORMATION
  Report Type: 
  Country: None (occurrence: None)
  Receive Date: 20110512
  Receipt Date: 20110502
  Transmission Date: 20111010
  Serious: Yes (Other)
  Sender: FDA-Public Use
  Company Number: US-BAYER-2011-000940

PATIENT
  Age: 25 Year
  Sex: Female
  Weight: 49.433 kg

DRUGS (5)
  1. CYTOTEC [Concomitant]
  2. CITALOPRAM HYDROBROMIDE [Concomitant]
     Dosage: 10 MG, QD
  3. MIRENA [Suspect]
     Indication: MENORRHAGIA
  4. LOESTRIN FE 1/20 [Concomitant]
  5. MIRENA [Suspect]
     Indication: CONTRACEPTION
     Dosage: 20 MCG/24HR, CONT
     Route: 015
     Dates: start: 20101014, end: 20110117

REACTIONS (4)
  - ABDOMINAL PAIN [None]
  - PELVIC PAIN [None]
  - PROCEDURAL PAIN [None]
  - DYSMENORRHOEA [None]
